FAERS Safety Report 9398546 (Version 1)
Quarter: 2013Q3

REPORT INFORMATION
  Report Type: Report from Study
  Country: IN (occurrence: IN)
  Receive Date: 20130712
  Receipt Date: 20130712
  Transmission Date: 20140515
  Serious: Yes (Hospitalization)
  Sender: FDA-Public Use
  Company Number: IN-BRISTOL-MYERS SQUIBB COMPANY-16406084

PATIENT
  Age: 65 Year
  Sex: Male

DRUGS (2)
  1. SAXAGLIPTIN [Suspect]
     Indication: TYPE 2 DIABETES MELLITUS
     Dates: start: 20110209
  2. INSULIN MIXTARD 30 HM [Suspect]
     Indication: TYPE 2 DIABETES MELLITUS
     Dates: start: 20120207

REACTIONS (1)
  - Cellulitis [Recovered/Resolved]
